FAERS Safety Report 9856073 (Version 2)
Quarter: 2014Q1

REPORT INFORMATION
  Report Type: Spontaneous
  Country: US (occurrence: US)
  Receive Date: 20140130
  Receipt Date: 20140204
  Transmission Date: 20141002
  Serious: Yes (Hospitalization)
  Sender: FDA-Public Use
  Company Number: US-TEVA-458915USA

PATIENT
  Age: 25 Year
  Sex: Male

DRUGS (1)
  1. COPAXONE [Suspect]
     Indication: MULTIPLE SCLEROSIS
     Dates: start: 20100512

REACTIONS (10)
  - Multiple sclerosis relapse [Not Recovered/Not Resolved]
  - Depression [Unknown]
  - Grief reaction [Unknown]
  - Tremor [Unknown]
  - Feeling jittery [Unknown]
  - Sensitivity to weather change [Unknown]
  - Balance disorder [Unknown]
  - Amnesia [Unknown]
  - Tremor [Unknown]
  - Vision blurred [Unknown]
